FAERS Safety Report 23578551 (Version 3)
Quarter: 2024Q3

REPORT INFORMATION
  Report Type: Spontaneous
  Country: JP (occurrence: JP)
  Receive Date: 20240229
  Receipt Date: 20240906
  Transmission Date: 20241017
  Serious: Yes (Hospitalization)
  Sender: BAUSCH AND LOMB
  Company Number: JP-BAUSCH-BL-2024-003274

PATIENT
  Age: 82 Year
  Sex: Male

DRUGS (5)
  1. BUDESONIDE [Suspect]
     Active Substance: BUDESONIDE
     Indication: Product used for unknown indication
     Route: 048
     Dates: start: 20231212, end: 20240128
  2. LIALDA [Concomitant]
     Active Substance: MESALAMINE
     Indication: Product used for unknown indication
     Dates: start: 202211
  3. METFORMIN HYDROCHLORIDE\VILDAGLIPTIN [Concomitant]
     Active Substance: METFORMIN HYDROCHLORIDE\VILDAGLIPTIN
     Indication: Product used for unknown indication
  4. ALLOPURINOL [Concomitant]
     Active Substance: ALLOPURINOL
     Indication: Product used for unknown indication
  5. METFORMIN HYDROCHLORIDE\VILDAGLIPTIN [Concomitant]
     Active Substance: METFORMIN HYDROCHLORIDE\VILDAGLIPTIN
     Indication: Product used for unknown indication
     Dosage: VILDAGLIPTIN/METFORMIN HYDROCHLORIDE COMBINED DRUG

REACTIONS (1)
  - Small intestinal perforation [Recovering/Resolving]

NARRATIVE: CASE EVENT DATE: 20240128
